FAERS Safety Report 5942003-1 (Version None)
Quarter: 2008Q4

REPORT INFORMATION
  Report Type: 
  Country: None (occurrence: None)
  Receive Date: 20081031
  Receipt Date: 20081023
  Transmission Date: 20090506
  Serious: No
  Sender: FDA-Public Use
  Company Number: 20085701

PATIENT
  Sex: Male

DRUGS (1)
  1. LIORESAL [Suspect]
     Indication: MUSCLE SPASTICITY
     Dosage: 675.9 MCG, DAILY, INTRATHECAL
     Route: 037

REACTIONS (3)
  - CONDITION AGGRAVATED [None]
  - MUSCLE SPASTICITY [None]
  - PRIAPISM [None]
